FAERS Safety Report 10917684 (Version 1)
Quarter: 2015Q1

REPORT INFORMATION
  Report Type: Spontaneous
  Country: US (occurrence: None)
  Receive Date: 20150311
  Receipt Date: 20150311
  Transmission Date: 20150721
  Serious: No
  Sender: FDA-Public Use
  Company Number: 1210513-2015-00067

PATIENT
  Sex: Female

DRUGS (1)
  1. SF [Suspect]
     Active Substance: SODIUM FLUORIDE
     Indication: DENTAL CARIES
     Route: 048

REACTIONS (1)
  - Gingival bleeding [None]

NARRATIVE: CASE EVENT DATE: 20121113
